FAERS Safety Report 7687031-3 (Version None)
Quarter: 2011Q3

REPORT INFORMATION
  Report Type: 
  Country: None (occurrence: None)
  Receive Date: 20110816
  Receipt Date: 20110805
  Transmission Date: 20111222
  Serious: Yes (Hospitalization, Other)
  Sender: FDA-Public Use
  Company Number: FR-BRISTOL-MYERS SQUIBB COMPANY-15396070

PATIENT
  Age: 42 Year
  Sex: Male
  Weight: 68 kg

DRUGS (8)
  1. OXYCODONE HCL [Concomitant]
     Dosage: 1 DF: 3 TABS.20MG
  2. LYRICA [Concomitant]
     Route: 048
     Dates: start: 20100915
  3. OXYCONTIN [Concomitant]
     Dosage: 3-0-3 80MG
  4. ACETAMINOPHEN [Concomitant]
  5. IPILIMUMAB [Suspect]
     Indication: MALIGNANT MELANOMA
     Route: 042
     Dates: start: 20100915, end: 20101022
  6. MORPHINE [Concomitant]
     Route: 048
     Dates: start: 20100915
  7. PREDNISONE [Concomitant]
     Indication: PAIN
     Route: 048
     Dates: start: 20100915
  8. IMOVANE [Concomitant]

REACTIONS (3)
  - ACQUIRED HAEMOPHILIA [None]
  - NEOPLASM MALIGNANT [None]
  - HAEMATURIA [None]
